FAERS Safety Report 5803012-6 (Version None)
Quarter: 2008Q2

REPORT INFORMATION
  Report Type: 
  Country: None (occurrence: None)
  Receive Date: 20080625
  Receipt Date: 20080130
  Transmission Date: 20081010
  Serious: Yes (Hospitalization, Other)
  Sender: FDA-Public Use
  Company Number: DSU-2008-00133

PATIENT
  Age: 30 Year
  Sex: Male
  Weight: 85.7298 kg

DRUGS (1)
  1. BENICAR [Suspect]
     Indication: HYPERTENSION
     Dosage: 20 MG (20 MG, QD) ,PER ORAL
     Route: 048

REACTIONS (1)
  - RHABDOMYOLYSIS [None]
